FAERS Safety Report 9142359 (Version 1)
Quarter: 2013Q1

REPORT INFORMATION
  Report Type: Spontaneous
  Country: US (occurrence: US)
  Receive Date: 20130306
  Receipt Date: 20130306
  Transmission Date: 20140127
  Serious: No
  Sender: FDA-Public Use
  Company Number: US-009507513-1303USA001443

PATIENT
  Sex: 0

DRUGS (3)
  1. VICTRELIS [Suspect]
     Indication: HEPATITIS C
     Dosage: 800 MG, TID (1 UNIT OF USE BOTTLE OF 12)
     Route: 048
     Dates: start: 20130221, end: 2013
  2. PEGASYS [Suspect]
     Dosage: UNK
     Dates: start: 20130117
  3. RIBASPHERE [Suspect]
     Dosage: UNK
     Dates: start: 20130117

REACTIONS (1)
  - Hypersensitivity [Unknown]
